FAERS Safety Report 23228520 (Version 2)
Quarter: 2024Q1

REPORT INFORMATION
  Report Type: Spontaneous
  Country: US (occurrence: None)
  Receive Date: 20231125
  Receipt Date: 20240112
  Transmission Date: 20240409
  Serious: No
  Sender: FDA-Public Use
  Company Number: 2023A259859

PATIENT
  Age: 24378 Day
  Sex: Female

DRUGS (1)
  1. BREZTRI [Suspect]
     Active Substance: BUDESONIDE\FORMOTEROL\GLYCOPYRROLATE
     Route: 055
     Dates: start: 202305

REACTIONS (3)
  - Dyspnoea [Not Recovered/Not Resolved]
  - Device use issue [Not Recovered/Not Resolved]
  - Device defective [Not Recovered/Not Resolved]

NARRATIVE: CASE EVENT DATE: 20230901
